FAERS Safety Report 24071582 (Version 1)
Quarter: 2024Q3

REPORT INFORMATION
  Report Type: Report from Study
  Country: US (occurrence: US)
  Receive Date: 20240710
  Receipt Date: 20240710
  Transmission Date: 20241016
  Serious: No
  Sender: ROCHE
  Company Number: US-ROCHE-3577276

PATIENT
  Age: 84 Year
  Sex: Female

DRUGS (1)
  1. ALECENSA [Suspect]
     Active Substance: ALECTINIB HYDROCHLORIDE
     Indication: Lung neoplasm malignant
     Dosage: TAKE 3 CAPSULES BY MOUTH 2 TIMES DAILY (WITH BREAKFAST + DINNER).
     Route: 048

REACTIONS (2)
  - Intentional product misuse [Unknown]
  - No adverse event [Unknown]
